FAERS Safety Report 11618573 (Version 1)
Quarter: 2015Q4

REPORT INFORMATION
  Report Type: Spontaneous
  Country: FR (occurrence: FR)
  Receive Date: 20151012
  Receipt Date: 20151012
  Transmission Date: 20160304
  Serious: Yes (Life-Threatening, Other)
  Sender: FDA-Public Use
  Company Number: FR-HOSPIRA-3029992

PATIENT
  Age: 45 Year
  Sex: Male

DRUGS (10)
  1. FASTURTEC [Concomitant]
     Active Substance: RASBURICASE
     Indication: PRODUCT USED FOR UNKNOWN INDICATION
     Dosage: 1 IN 1 SINGLE TAKE
     Route: 042
     Dates: start: 20150910, end: 20150910
  2. PROPOFOL FRESENIUS [Suspect]
     Active Substance: PROPOFOL
     Indication: PRODUCT USED FOR UNKNOWN INDICATION
     Dosage: 1 IN 1 SINGLE DOSE
     Route: 042
     Dates: start: 20150914, end: 20150914
  3. ATRACURIUM HOSPIRA [Suspect]
     Active Substance: ATRACURIUM
     Indication: PRODUCT USED FOR UNKNOWN INDICATION
     Dosage: 1 IN 1 SINGLE DOSE
     Route: 042
     Dates: start: 20150914, end: 20150914
  4. FERINJECT [Suspect]
     Active Substance: FERRIC CARBOXYMALTOSE
     Indication: PRODUCT USED FOR UNKNOWN INDICATION
     Dosage: 2 FD, 1 IN 1 SINGLE DOSE
     Route: 042
     Dates: start: 20150914, end: 20150914
  5. OXYCONTIN [Suspect]
     Active Substance: OXYCODONE HYDROCHLORIDE
     Indication: PRODUCT USED FOR UNKNOWN INDICATION
     Dosage: 1 FD
     Route: 048
     Dates: start: 201508, end: 20150914
  6. SUFENTANIL MERCK [Suspect]
     Active Substance: SUFENTANIL
     Indication: PRODUCT USED FOR UNKNOWN INDICATION
     Dosage: 1 IN 1 SINGLE DOSE
     Route: 042
     Dates: start: 20150914, end: 20150914
  7. SODIUM HEPARIN [Concomitant]
     Active Substance: HEPARIN SODIUM
     Indication: DEEP VEIN THROMBOSIS
     Route: 042
     Dates: start: 201508
  8. METHYLPREDNISOLONE MYLAN           /00049602/ [Suspect]
     Active Substance: METHYLPREDNISOLONE SODIUM SUCCINATE
     Indication: PRODUCT USED FOR UNKNOWN INDICATION
     Route: 042
     Dates: start: 20150910, end: 20150914
  9. ZINNAT                             /00454602/ [Suspect]
     Active Substance: CEFUROXIME SODIUM
     Indication: PRODUCT USED FOR UNKNOWN INDICATION
     Dosage: 1 IN 1 SINGLE DOSE
     Route: 042
     Dates: start: 20150914, end: 20150914
  10. PARACETAMOL [Concomitant]
     Active Substance: ACETAMINOPHEN
     Indication: PRODUCT USED FOR UNKNOWN INDICATION
     Dosage: 1 IN 1 SINGLE DOSE
     Route: 065
     Dates: start: 20150914, end: 20150914

REACTIONS (3)
  - Respiratory distress [Unknown]
  - Sepsis [Unknown]
  - Mixed liver injury [Recovered/Resolved]

NARRATIVE: CASE EVENT DATE: 20150914
